FAERS Safety Report 8492285-X (Version None)
Quarter: 2012Q3

REPORT INFORMATION
  Report Type: 
  Country: None (occurrence: None)
  Receive Date: 20120706
  Receipt Date: 20120629
  Transmission Date: 20120928
  Serious: Yes (Hospitalization, Other)
  Sender: FDA-Public Use
  Company Number: JP-ROCHE-1072970

PATIENT
  Sex: Male

DRUGS (3)
  1. AVASTIN [Suspect]
     Indication: RECTAL CANCER METASTATIC
     Route: 041
     Dates: start: 20091201, end: 20110501
  2. OXALIPLATIN [Concomitant]
     Indication: RECTAL CANCER METASTATIC
     Route: 041
     Dates: start: 20091201, end: 20110501
  3. XELODA [Suspect]
     Indication: RECTAL CANCER METASTATIC
     Dosage: 2 WEEKS ADMINISTRATION AND 1 WEEK REST
     Route: 048
     Dates: start: 20091201, end: 20110501

REACTIONS (2)
  - NEPHROTIC SYNDROME [None]
  - IGA NEPHROPATHY [None]
